FAERS Safety Report 19941216 (Version 1)
Quarter: 2021Q4

REPORT INFORMATION
  Report Type: Spontaneous
  Country: IT (occurrence: IT)
  Receive Date: 20211011
  Receipt Date: 20211011
  Transmission Date: 20220304
  Serious: No
  Sender: FDA-Public Use
  Company Number: None

PATIENT
  Age: 43 Year
  Sex: Male

DRUGS (2)
  1. SUNOSI [Suspect]
     Active Substance: SOLRIAMFETOL
     Indication: Narcolepsy
     Dosage: 75 MILLIGRAM, QD
     Route: 048
     Dates: start: 20210717, end: 2021
  2. SUNOSI [Suspect]
     Active Substance: SOLRIAMFETOL
     Dosage: UNKNOWN REDUCED DOSE
     Route: 048
     Dates: start: 2021, end: 20210830

REACTIONS (1)
  - Palpitations [Recovered/Resolved]

NARRATIVE: CASE EVENT DATE: 20210806
